FAERS Safety Report 19019631 (Version 1)
Quarter: 2021Q1

REPORT INFORMATION
  Report Type: Report from Study
  Country: IN (occurrence: IN)
  Receive Date: 20210316
  Receipt Date: 20210316
  Transmission Date: 20210420
  Serious: Yes (Death)
  Sender: FDA-Public Use
  Company Number: IN-ASTRAZENECA-2021A137530

PATIENT
  Age: 53 Year
  Sex: Female
  Weight: 110 kg

DRUGS (1)
  1. OLAPARIB. [Suspect]
     Active Substance: OLAPARIB
     Indication: OVARIAN CANCER STAGE IV
     Route: 048

REACTIONS (1)
  - Ejection fraction decreased [Fatal]

NARRATIVE: CASE EVENT DATE: 20200301
